FAERS Safety Report 9633828 (Version 2)
Quarter: 2013Q4

REPORT INFORMATION
  Report Type: Spontaneous
  Country: BR (occurrence: BR)
  Receive Date: 20131021
  Receipt Date: 20131021
  Transmission Date: 20140711
  Serious: Yes (Other)
  Sender: FDA-Public Use
  Company Number: BR-PFIZER INC-2013265425

PATIENT
  Sex: Female

DRUGS (1)
  1. EFEXOR XR [Suspect]
     Dosage: UNK
     Route: 048

REACTIONS (5)
  - Road traffic accident [Unknown]
  - Mental disorder [Unknown]
  - Feeling abnormal [Unknown]
  - Distractibility [Unknown]
  - Product blister packaging issue [Unknown]
